FAERS Safety Report 4304013-X (Version None)
Quarter: 2004Q1

REPORT INFORMATION
  Report Type: 
  Country: None (occurrence: None)
  Receive Date: 20040223
  Receipt Date: 20031031
  Transmission Date: 20041129
  Serious: No
  Sender: FDA-Public Use
  Company Number: PHEH2003US10076

PATIENT
  Age: 80 Year
  Sex: Female

DRUGS (1)
  1. ZELNORM [Suspect]
     Dosage: ORAL

REACTIONS (4)
  - ABDOMINAL PAIN [None]
  - BACK PAIN [None]
  - PAIN IN EXTREMITY [None]
  - PELVIC PAIN [None]
